FAERS Safety Report 20118840 (Version 1)
Quarter: 2021Q4

REPORT INFORMATION
  Report Type: Spontaneous
  Country: US (occurrence: None)
  Receive Date: 20211126
  Receipt Date: 20211126
  Transmission Date: 20220303
  Serious: Yes (Other)
  Sender: FDA-Public Use
  Company Number: US-ROCHE-2960416

PATIENT
  Age: 74 Year
  Sex: Female

DRUGS (13)
  1. AVASTIN [Suspect]
     Active Substance: BEVACIZUMAB
     Indication: Product used for unknown indication
     Route: 041
     Dates: start: 20211024
  2. ZEJULA [Suspect]
     Active Substance: NIRAPARIB
     Indication: Ovarian cancer
     Route: 048
     Dates: start: 20180629
  3. ZEJULA [Suspect]
     Active Substance: NIRAPARIB
     Route: 048
     Dates: start: 201804
  4. ZEJULA [Suspect]
     Active Substance: NIRAPARIB
     Route: 048
     Dates: start: 20200217
  5. ZEJULA [Suspect]
     Active Substance: NIRAPARIB
     Route: 048
     Dates: start: 20210610
  6. ZEJULA [Suspect]
     Active Substance: NIRAPARIB
     Route: 048
     Dates: start: 20201030
  7. ZEJULA [Suspect]
     Active Substance: NIRAPARIB
     Route: 048
     Dates: start: 20201203
  8. ZEJULA [Suspect]
     Active Substance: NIRAPARIB
     Route: 048
     Dates: start: 20210204
  9. ZEJULA [Suspect]
     Active Substance: NIRAPARIB
     Route: 048
  10. DIGOXIN [Concomitant]
     Active Substance: DIGOXIN
  11. LISINOPRIL [Concomitant]
     Active Substance: LISINOPRIL
  12. MAGNESIUM CHLORIDE [Concomitant]
     Active Substance: MAGNESIUM CHLORIDE
  13. METFORMIN [Concomitant]
     Active Substance: METFORMIN HYDROCHLORIDE

REACTIONS (18)
  - Metastases to lymph nodes [Unknown]
  - Palpitations [Unknown]
  - Protein urine [Recovered/Resolved]
  - Blood glucose decreased [Unknown]
  - Blood pressure increased [Recovered/Resolved]
  - Weight decreased [Recovered/Resolved]
  - Insomnia [Not Recovered/Not Resolved]
  - Decreased appetite [Recovered/Resolved]
  - Taste disorder [Recovered/Resolved]
  - Carbohydrate antigen 125 increased [Not Recovered/Not Resolved]
  - Fatigue [Recovered/Resolved]
  - Constipation [Recovered/Resolved]
  - Dyspnoea [Recovered/Resolved]
  - Rotator cuff syndrome [Recovered/Resolved]
  - Cough [Unknown]
  - Blood calcium increased [Unknown]
  - Dyspnoea exertional [Recovering/Resolving]
  - Dehydration [Unknown]
